FAERS Safety Report 16016185 (Version 3)
Quarter: 2025Q2

REPORT INFORMATION
  Report Type: Spontaneous
  Country: PT (occurrence: PT)
  Receive Date: 20190228
  Receipt Date: 20250429
  Transmission Date: 20250716
  Serious: Yes (Other)
  Sender: AUROBINDO
  Company Number: PT-AUROBINDO-AUR-APL-2019-009733

PATIENT
  Age: 12 Year
  Sex: Female

DRUGS (8)
  1. ENALAPRIL [Suspect]
     Active Substance: ENALAPRIL
     Indication: Microalbuminuria
     Dosage: 10 MILLIGRAM, ONCE A DAY
     Route: 065
  2. METFORMIN [Suspect]
     Active Substance: METFORMIN HYDROCHLORIDE
     Indication: Microalbuminuria
     Route: 065
  3. METFORMIN [Suspect]
     Active Substance: METFORMIN HYDROCHLORIDE
     Route: 065
  4. LOSARTAN [Suspect]
     Active Substance: LOSARTAN
     Indication: Microalbuminuria
     Dosage: 50 MILLIGRAM, ONCE A DAY
     Route: 065
  5. INSULIN NOS [Suspect]
     Active Substance: INSULIN NOS
     Indication: Product used for unknown indication
     Route: 058
  6. GEMFIBROZIL [Concomitant]
     Active Substance: GEMFIBROZIL
     Indication: Product used for unknown indication
     Dosage: 600 MILLIGRAM, ONCE A DAY
     Route: 065
  7. URSODIOL [Concomitant]
     Active Substance: URSODIOL
     Indication: Product used for unknown indication
     Dosage: 1000 MILLIGRAM, ONCE A DAY
     Route: 065
  8. IRON [Concomitant]
     Active Substance: IRON
     Indication: Iron deficiency anaemia
     Route: 048

REACTIONS (6)
  - Microalbuminuria [Unknown]
  - Metabolic syndrome [Not Recovered/Not Resolved]
  - Condition aggravated [Unknown]
  - Product use in unapproved indication [Unknown]
  - Off label use [Unknown]
  - No adverse event [Unknown]
